FAERS Safety Report 5760842-7 (Version None)
Quarter: 2008Q2

REPORT INFORMATION
  Report Type: 
  Country: None (occurrence: None)
  Receive Date: 20080606
  Receipt Date: 20080527
  Transmission Date: 20081010
  Serious: Yes (Other)
  Sender: FDA-Public Use
  Company Number: US-ROCHE-566885

PATIENT
  Sex: Female
  Weight: 79.4 kg

DRUGS (2)
  1. PEG-INTERFERON A-2A (RO 25-8310) [Suspect]
     Dosage: FORM:PFS
     Route: 065
     Dates: start: 20070916
  2. RIBAVIRIN [Suspect]
     Route: 065
     Dates: start: 20070916

REACTIONS (1)
  - DIVERTICULITIS [None]
